FAERS Safety Report 9119574 (Version 1)
Quarter: 2013Q1

REPORT INFORMATION
  Report Type: Spontaneous
  Country: ES (occurrence: ES)
  Receive Date: 20130226
  Receipt Date: 20130226
  Transmission Date: 20140127
  Serious: Yes (Hospitalization)
  Sender: FDA-Public Use
  Company Number: ES-MYLANLABS-2013S1003161

PATIENT
  Age: 35 Year
  Sex: Female

DRUGS (4)
  1. AZATHIOPRINE [Suspect]
     Indication: MYASTHENIA GRAVIS
     Route: 065
  2. PREDNISONE [Concomitant]
     Indication: MYASTHENIA GRAVIS
     Dosage: 5 MG/DAY
     Route: 048
  3. PYRIDOSTIGMINE [Concomitant]
     Indication: MYASTHENIA GRAVIS
     Route: 065
  4. CALCIUM [Concomitant]
     Indication: MYASTHENIA GRAVIS
     Route: 065

REACTIONS (2)
  - Neutrophilic dermatosis [Recovered/Resolved]
  - Drug hypersensitivity [Recovered/Resolved]
